FAERS Safety Report 4870210-8 (Version None)
Quarter: 2005Q4

REPORT INFORMATION
  Report Type: 
  Country: None (occurrence: None)
  Receive Date: 20051228
  Receipt Date: 20051214
  Transmission Date: 20060501
  Serious: Yes (Other)
  Sender: FDA-Public Use
  Company Number: 200510677BFR

PATIENT
  Age: 75 Year
  Sex: Male

DRUGS (1)
  1. ACARBOSE [Suspect]
     Dosage: 100 MG, TOTAL DAILY
     Dates: start: 20041001

REACTIONS (3)
  - ANAEMIA HAEMOLYTIC AUTOIMMUNE [None]
  - HEPATIC CIRRHOSIS [None]
  - HEPATIC FUNCTION ABNORMAL [None]
